FAERS Safety Report 4338605-9 (Version None)
Quarter: 2004Q2

REPORT INFORMATION
  Report Type: 
  Country: None (occurrence: None)
  Receive Date: 20040414
  Receipt Date: 20031126
  Transmission Date: 20050107
  Serious: Yes (Disabling)
  Sender: FDA-Public Use
  Company Number: US-MERCK-0312USA00023

PATIENT
  Age: 73 Year
  Sex: Male
  Weight: 78 kg

DRUGS (8)
  1. ASPIRIN [Concomitant]
     Route: 048
  2. XALATAN [Concomitant]
     Route: 065
     Dates: start: 19940101
  3. PRILOSEC [Concomitant]
     Route: 065
  4. ZOCOR [Suspect]
     Indication: HYPERCHOLESTEROLAEMIA
     Route: 048
     Dates: start: 20020921, end: 20031117
  5. ZOCOR [Suspect]
     Route: 048
     Dates: start: 20031101, end: 20031128
  6. ZOCOR [Suspect]
     Route: 048
     Dates: start: 20031201, end: 20031216
  7. ZOCOR [Suspect]
     Route: 048
     Dates: start: 20031201, end: 20040123
  8. TIMOPTIC-XE [Concomitant]
     Route: 047
     Dates: start: 19940101

REACTIONS (9)
  - ARTHRALGIA [None]
  - BACK PAIN [None]
  - BONE PAIN [None]
  - BUTTOCK PAIN [None]
  - MYALGIA [None]
  - PAIN IN EXTREMITY [None]
  - SCIATICA [None]
  - TESTICULAR PAIN [None]
  - VERTIGO [None]
